FAERS Safety Report 7792850-9 (Version None)
Quarter: 2011Q4

REPORT INFORMATION
  Report Type: 
  Country: None (occurrence: None)
  Receive Date: 20111003
  Receipt Date: 20110926
  Transmission Date: 20120403
  Serious: Yes (Other)
  Sender: FDA-Public Use
  Company Number: JP-GLAXOSMITHKLINE-B0747507A

PATIENT
  Sex: Male

DRUGS (7)
  1. ZOLPIDEM TARTRATE [Concomitant]
     Indication: INSOMNIA
     Dosage: 10MG PER DAY
     Route: 048
  2. FLUNITRAZEPAM [Concomitant]
     Dosage: 1MG PER DAY
     Route: 065
  3. ETIZOLAM [Concomitant]
     Dosage: .5MG PER DAY
     Route: 048
  4. PAXIL [Suspect]
     Indication: DEPRESSION
     Dosage: 30MG PER DAY
     Route: 048
     Dates: start: 20090101, end: 20100101
  5. FLUNITRAZEPAM [Concomitant]
     Indication: INSOMNIA
     Dosage: 2MG PER DAY
     Route: 065
  6. ETIZOLAM [Concomitant]
     Indication: INSOMNIA
     Dosage: 2MG PER DAY
     Route: 048
  7. ETIZOLAM [Concomitant]
     Dosage: 1MG PER DAY
     Route: 048

REACTIONS (4)
  - IMPULSIVE BEHAVIOUR [None]
  - INSOMNIA [None]
  - MANIA [None]
  - IRRITABILITY [None]
